FAERS Safety Report 7340974-2 (Version None)
Quarter: 2011Q1

REPORT INFORMATION
  Report Type: 
  Country: None (occurrence: None)
  Receive Date: 20110309
  Receipt Date: 20101216
  Transmission Date: 20110831
  Serious: No
  Sender: FDA-Public Use
  Company Number: US-ABBOTT-10P-163-0692691-00

PATIENT
  Sex: Female

DRUGS (1)
  1. LUPRON DEPOT [Suspect]
     Indication: ENDOMETRIOSIS
     Dates: start: 20100701

REACTIONS (5)
  - OVARIAN CYST [None]
  - PAIN [None]
  - ENDOMETRIAL HYPERTROPHY [None]
  - ENDOMETRIOSIS [None]
  - ABDOMINAL PAIN [None]
